FAERS Safety Report 10996986 (Version 1)
Quarter: 2015Q2

REPORT INFORMATION
  Report Type: Spontaneous
  Country: US (occurrence: None)
  Receive Date: 20150406
  Receipt Date: 20150406
  Transmission Date: 20150821
  Serious: Yes (Death)
  Sender: FDA-Public Use
  Company Number: ADR-2015-00636

PATIENT
  Age: 66 Year
  Sex: Male

DRUGS (4)
  1. COMPOUNDED BACLOFEN INTRATHECAL [Suspect]
     Active Substance: BACLOFEN
     Indication: PAIN
  2. FENTANYL INTRATHECAL [Suspect]
     Active Substance: FENTANYL
  3. MORPHINE (INTRATHECAL) [Suspect]
     Active Substance: MORPHINE
     Indication: PAIN
  4. INTRATHECAL BUPIVACAINE [Suspect]
     Active Substance: BUPIVACAINE

REACTIONS (1)
  - Death [None]
